FAERS Safety Report 21390049 (Version 1)
Quarter: 2022Q3

REPORT INFORMATION
  Report Type: Spontaneous
  Country: CA (occurrence: CA)
  Receive Date: 20220929
  Receipt Date: 20220929
  Transmission Date: 20221027
  Serious: Yes (Other)
  Sender: FDA-Public Use
  Company Number: CA-SUN PHARMACEUTICAL INDUSTRIES LTD-2022R1-352053

PATIENT
  Age: 46 Year
  Sex: Female

DRUGS (3)
  1. PREDNISONE [Suspect]
     Active Substance: PREDNISONE
     Indication: Rash erythematous
     Dosage: 50 MILLIGRAM
     Route: 065
  2. PREDNISONE [Suspect]
     Active Substance: PREDNISONE
     Dosage: UNK,TAPERED OVER 15 DAYS
     Route: 065
  3. DESONIDE [Suspect]
     Active Substance: DESONIDE
     Indication: Rash erythematous
     Dosage: UNK
     Route: 065

REACTIONS (1)
  - Disease recurrence [Unknown]
